FAERS Safety Report 13435936 (Version 1)
Quarter: 2017Q2

REPORT INFORMATION
  Report Type: Spontaneous
  Country: US (occurrence: US)
  Receive Date: 20170412
  Receipt Date: 20170412
  Transmission Date: 20170830
  Serious: Yes (Other)
  Sender: FDA-Public Use
  Company Number: None

PATIENT
  Age: 59 Year
  Sex: Female
  Weight: 76.5 kg

DRUGS (9)
  1. LISINOPRIL, GENERIC FOR ZESTRIL [Suspect]
     Active Substance: LISINOPRIL
     Indication: HYPERTENSION
     Dosage: ?          QUANTITY:1 TABLET(S);?
     Route: 048
     Dates: start: 20170222, end: 20170412
  2. YOUNG LIVING FRANKINCENSE AND  LAVENDER [Concomitant]
  3. SUN BUM MANGO LIP BALM [Concomitant]
  4. AVALON ORGANICS ALOE UNSCENTED LOTION [Concomitant]
  5. LISINOPRIL, GENERIC FOR ZESTRIL [Suspect]
     Active Substance: LISINOPRIL
     Indication: OEDEMA
     Dosage: ?          QUANTITY:1 TABLET(S);?
     Route: 048
     Dates: start: 20170222, end: 20170412
  6. SHAKLEE - VITALIZER MULTI VITAMIN [Concomitant]
  7. LIVER DTX LIVER DETOXIFER VIVIX [Concomitant]
  8. OPTIFLORA PROBIOTIC [Concomitant]
  9. WHEY SHAKES [Concomitant]

REACTIONS (3)
  - Lip swelling [None]
  - Mouth swelling [None]
  - Blood pressure decreased [None]

NARRATIVE: CASE EVENT DATE: 20170316
